FAERS Safety Report 9166993 (Version 1)
Quarter: 2013Q1

REPORT INFORMATION
  Report Type: Spontaneous
  Country: IT (occurrence: IT)
  Receive Date: 20130317
  Receipt Date: 20130317
  Transmission Date: 20140127
  Serious: Yes (Life-Threatening)
  Sender: FDA-Public Use
  Company Number: IT-TEVA-391396ISR

PATIENT
  Age: 52 Year
  Sex: Male

DRUGS (2)
  1. AMOXICILLINA E ACIDO CLAVULANIC [Suspect]
     Indication: SINUSITIS
     Dosage: 2 DOSAGE FORMS DAILY; AMOXICILLIN 875 MG/CLAVULANIC ACID 125 MG
     Route: 048
     Dates: start: 20130217, end: 20130218
  2. ASCRIPTIN [Concomitant]
     Route: 048

REACTIONS (2)
  - Dermatitis allergic [Recovered/Resolved]
  - Dyspnoea [Recovered/Resolved]
